FAERS Safety Report 7612592 (Version 4)
Quarter: 2013Q2

REPORT INFORMATION
  Report Type: Spontaneous
  Country: US (occurrence: US)
  Receive Date: 20100930
  Receipt Date: 20130528
  Transmission Date: 20140414
  Serious: Yes (Life-Threatening, Hospitalization, Other)
  Sender: FDA-Public Use
  Company Number: US-BAYER-201030877NA

PATIENT
  Age: 41 Year
  Sex: Female
  Weight: 58 kg

DRUGS (16)
  1. YAZ [Suspect]
     Dosage: UNK
     Dates: start: 20070607, end: 20091207
  2. OCELLA [Suspect]
     Indication: CONTRACEPTION
     Dates: start: 20070607, end: 20091207
  3. YASMIN [Suspect]
     Indication: PRODUCT USED FOR UNKNOWN INDICATION
     Dates: start: 2007
  4. BENICAR [Concomitant]
     Dates: start: 2008
  5. MAXALT [Concomitant]
  6. WELLBUTRIN SR [Concomitant]
  7. EFFEXOR XR [Concomitant]
  8. DARVOCET [Concomitant]
     Indication: ARTHRALGIA
     Dosage: UNK
     Dates: start: 2005, end: 2009
  9. VALTREX [Concomitant]
  10. NEBIVOLOL [Concomitant]
  11. BUDEPRION [Concomitant]
     Indication: DEPRESSION
     Dosage: UNK
     Dates: start: 2003
  12. PROPOXYPHENE [Concomitant]
  13. SULINDAC [Concomitant]
     Indication: INFLAMMATION
     Dosage: UNK
     Dates: start: 2009
  14. ALPRAZOLAM [Concomitant]
  15. VENLAFAXINE [Concomitant]
  16. NEBIVOLOL HYDROCHLORIDE [Concomitant]

REACTIONS (16)
  - Cholecystitis chronic [None]
  - Biliary dyskinesia [None]
  - Gallbladder disorder [None]
  - Myocardial infarction [None]
  - Mental disorder [None]
  - Dyspnoea [None]
  - Chest discomfort [None]
  - Pain in extremity [None]
  - Nausea [None]
  - Injury [None]
  - Pain [None]
  - Anxiety [None]
  - Anhedonia [None]
  - Fear of disease [None]
  - Emotional distress [None]
  - Deformity [None]
